FAERS Safety Report 9366275 (Version 1)
Quarter: 2013Q2

REPORT INFORMATION
  Report Type: Spontaneous
  Country: IT (occurrence: IT)
  Receive Date: 20130625
  Receipt Date: 20130625
  Transmission Date: 20140414
  Serious: Yes (Death)
  Sender: FDA-Public Use
  Company Number: IT-JNJFOC-20130610131

PATIENT
  Sex: 0

DRUGS (13)
  1. REOPRO [Suspect]
     Indication: PERCUTANEOUS CORONARY INTERVENTION
     Route: 042
  2. REOPRO [Suspect]
     Indication: PERCUTANEOUS CORONARY INTERVENTION
     Route: 042
  3. REOPRO [Suspect]
     Indication: ACUTE MYOCARDIAL INFARCTION
     Route: 042
  4. REOPRO [Suspect]
     Indication: ACUTE MYOCARDIAL INFARCTION
     Route: 042
  5. CLOPIDOGREL [Concomitant]
     Indication: ACUTE MYOCARDIAL INFARCTION
     Route: 048
  6. CLOPIDOGREL [Concomitant]
     Indication: ACUTE MYOCARDIAL INFARCTION
     Route: 048
  7. ASPIRIN [Concomitant]
     Indication: ACUTE MYOCARDIAL INFARCTION
     Route: 048
  8. ASPIRIN [Concomitant]
     Indication: ACUTE MYOCARDIAL INFARCTION
     Route: 042
  9. HEPARIN [Concomitant]
     Indication: ACUTE MYOCARDIAL INFARCTION
     Route: 065
  10. TICLOPIDINE [Concomitant]
     Indication: MYOCARDIAL INFARCTION
     Route: 065
  11. BETA BLOCKERS, NOS [Concomitant]
     Indication: MYOCARDIAL INFARCTION
     Route: 065
  12. STATINS [Concomitant]
     Indication: MYOCARDIAL INFARCTION
     Route: 065
  13. ACE INHIBITORS [Concomitant]
     Indication: MYOCARDIAL INFARCTION
     Route: 003

REACTIONS (1)
  - Death [Fatal]
